FAERS Safety Report 19527383 (Version 6)
Quarter: 2022Q2

REPORT INFORMATION
  Report Type: Report from Study
  Country: EC (occurrence: EC)
  Receive Date: 20210713
  Receipt Date: 20220511
  Transmission Date: 20220720
  Serious: Yes (Hospitalization, Other)
  Sender: FDA-Public Use
  Company Number: EC-002147023-NVSC2021EC124491

PATIENT

DRUGS (2)
  1. RUXOLITINIB [Suspect]
     Active Substance: RUXOLITINIB
     Indication: Myelofibrosis
     Dosage: 15 MG, QD
     Route: 048
     Dates: start: 20210519, end: 20210628
  2. RUXOLITINIB [Suspect]
     Active Substance: RUXOLITINIB
     Dosage: 15 MG, BID
     Route: 048
     Dates: start: 20210629

REACTIONS (12)
  - SARS-CoV-2 test positive [Unknown]
  - Choking [Unknown]
  - Feeling of despair [Unknown]
  - Movement disorder [Not Recovered/Not Resolved]
  - Expired product administered [Unknown]
  - Pruritus [Unknown]
  - Decreased appetite [Unknown]
  - Feeling abnormal [Recovering/Resolving]
  - Paraesthesia [Unknown]
  - Product availability issue [Unknown]
  - Inappropriate schedule of product administration [Unknown]
  - Genital herpes [Unknown]

NARRATIVE: CASE EVENT DATE: 20210519
